FAERS Safety Report 15657708 (Version 1)
Quarter: 2018Q4

REPORT INFORMATION
  Report Type: Report from Study
  Country: ES (occurrence: ES)
  Receive Date: 20181126
  Receipt Date: 20181126
  Transmission Date: 20190205
  Serious: Yes (Life-Threatening, Hospitalization)
  Sender: FDA-Public Use
  Company Number: ES-PFIZER INC-2018481722

PATIENT
  Age: 51 Year
  Sex: Male

DRUGS (6)
  1. FUROSEMIDE. [Suspect]
     Active Substance: FUROSEMIDE
     Indication: ASCITES
     Dosage: 120 MG, 1X/DAY
     Route: 048
     Dates: start: 20180423, end: 20180507
  2. SPIRONOLACTONE. [Suspect]
     Active Substance: SPIRONOLACTONE
     Indication: ASCITES
     Dosage: 300 MG, 1X/DAY
     Route: 048
     Dates: start: 20180321, end: 20180422
  3. SUMIAL [Concomitant]
     Active Substance: PROPRANOLOL HYDROCHLORIDE
     Indication: PROPHYLAXIS
     Route: 048
     Dates: start: 20130702, end: 20180422
  4. FUROSEMIDA [FUROSEMIDE] [Concomitant]
     Indication: ASCITES
     Dosage: 40 MG, 1X/DAY
     Route: 048
     Dates: start: 20130213, end: 20180422
  5. OMEPRAZOL [Concomitant]
     Active Substance: OMEPRAZOLE
     Indication: PROPHYLAXIS
     Dosage: 40 MG, 1X/DAY
     Route: 048
     Dates: start: 20121220, end: 20180422
  6. DISTRANEURINE [CLOMETHIAZOLE EDISILATE] [Concomitant]
     Indication: ALCOHOL WITHDRAWAL SYNDROME
     Dosage: 576 UG, 1X/DAY
     Route: 048
     Dates: start: 20121220, end: 20180422

REACTIONS (2)
  - Wrong technique in product usage process [Recovered/Resolved]
  - Hyponatraemia [Not Recovered/Not Resolved]

NARRATIVE: CASE EVENT DATE: 20180423
